FAERS Safety Report 7726029-3 (Version None)
Quarter: 2011Q3

REPORT INFORMATION
  Report Type: 
  Country: None (occurrence: None)
  Receive Date: 20110831
  Receipt Date: 20110816
  Transmission Date: 20111222
  Serious: Yes (Life-Threatening, Hospitalization, Other)
  Sender: FDA-Public Use
  Company Number: 2011MA010850

PATIENT
  Age: 38 Year
  Sex: Male

DRUGS (2)
  1. NAPROXEN SODIUM [Suspect]
     Indication: SUICIDE ATTEMPT
     Dosage: 11000 MG; X1; PO
     Route: 048
  2. METFORMIN HYDROCHLORIDE [Suspect]
     Indication: SUICIDE ATTEMPT
     Dosage: 85000 MG; X1, PO
     Route: 048

REACTIONS (15)
  - BLOOD GLUCOSE DECREASED [None]
  - METABOLIC ACIDOSIS [None]
  - HAEMODIALYSIS [None]
  - SUICIDE ATTEMPT [None]
  - DYSPNOEA [None]
  - LOSS OF CONSCIOUSNESS [None]
  - NAUSEA [None]
  - CONFUSIONAL STATE [None]
  - INCORRECT DOSE ADMINISTERED [None]
  - DIZZINESS [None]
  - VOMITING [None]
  - BLOOD PRESSURE SYSTOLIC INCREASED [None]
  - GRAND MAL CONVULSION [None]
  - HYPOTENSION [None]
  - TOXICITY TO VARIOUS AGENTS [None]
